FAERS Safety Report 5217935-2 (Version None)
Quarter: 2007Q1

REPORT INFORMATION
  Report Type: 
  Country: None (occurrence: None)
  Receive Date: 20061130
  Receipt Date: 20060807
  Transmission Date: 20070707
  Serious: Yes (Other)
  Sender: FDA-Public Use
  Company Number: US200607000750

PATIENT
  Sex: Male
  Weight: 117.9 kg

DRUGS (6)
  1. ZYPREXA [Suspect]
     Dates: start: 19970501, end: 20010701
  2. DEPAKOTE [Concomitant]
  3. LITHIUM CARBONATE [Concomitant]
  4. BUPROPION HCL [Concomitant]
  5. RISPERIDONE [Concomitant]
  6. TOPAMAX [Concomitant]

REACTIONS (3)
  - DIABETES MELLITUS [None]
  - DIABETIC KETOACIDOSIS [None]
  - METABOLIC DISORDER [None]
